FAERS Safety Report 19822753 (Version 1)
Quarter: 2021Q3

REPORT INFORMATION
  Report Type: Spontaneous
  Country: FR (occurrence: FR)
  Receive Date: 20210913
  Receipt Date: 20210913
  Transmission Date: 20211014
  Serious: Yes (Hospitalization)
  Sender: FDA-Public Use
  Company Number: FR-PFIZER INC-202101130714

PATIENT
  Age: 64 Year
  Sex: Male
  Weight: 63 kg

DRUGS (7)
  1. AMIODARONE [Suspect]
     Active Substance: AMIODARONE
     Dosage: UNK
  2. BISOPROLOL FUMARATE. [Concomitant]
     Active Substance: BISOPROLOL FUMARATE
  3. FLUOROURACILE PFIZER [Suspect]
     Active Substance: FLUOROURACIL
     Indication: LARYNGEAL CANCER
     Dosage: 6800 MG, FREQ:96 H
     Route: 042
     Dates: start: 20210716, end: 20210719
  4. ROSUVASTATINE [ROSUVASTATIN] [Concomitant]
     Active Substance: ROSUVASTATIN
  5. PREVISCAN [FLUINDIONE] [Concomitant]
     Active Substance: FLUINDIONE
  6. CARBOPLATINE HOSPIRA [Suspect]
     Active Substance: CARBOPLATIN
     Indication: LARYNGEAL CANCER
     Dosage: 485 MG, CYCLIC
     Route: 042
     Dates: start: 20210716
  7. KEYTRUDA [Suspect]
     Active Substance: PEMBROLIZUMAB
     Indication: LARYNGEAL CANCER
     Dosage: 200 MG, CYCLIC
     Route: 042
     Dates: start: 20210716

REACTIONS (1)
  - Acute coronary syndrome [Recovered/Resolved]

NARRATIVE: CASE EVENT DATE: 20210719
